FAERS Safety Report 23763442 (Version 1)
Quarter: 2024Q2

REPORT INFORMATION
  Report Type: Spontaneous
  Country: RO (occurrence: RO)
  Receive Date: 20240419
  Receipt Date: 20240419
  Transmission Date: 20240716
  Serious: Yes (Death, Other)
  Sender: FDA-Public Use
  Company Number: RO-AMGEN-ROUSP2024066240

PATIENT
  Age: 65 Year
  Sex: Male

DRUGS (5)
  1. LENALIDOMIDE [Suspect]
     Active Substance: LENALIDOMIDE
     Indication: Plasma cell myeloma
     Dosage: 15 MILLIGRAM
     Route: 065
     Dates: start: 202306
  2. KYPROLIS [Suspect]
     Active Substance: CARFILZOMIB
     Indication: Plasma cell myeloma
     Dosage: 27 MILLIGRAM/SQ. METER DAYS 8/9 AND 15/16
     Route: 042
  3. KYPROLIS [Suspect]
     Active Substance: CARFILZOMIB
     Dosage: 20 MILLIGRAM/SQ. METER CYCLE 1, DAYS 1 AND 2,
     Route: 042
     Dates: start: 202306
  4. KYPROLIS [Suspect]
     Active Substance: CARFILZOMIB
     Dosage: 54 MILLIGRAM/SQ. METER ON DAYS 1, 8, 15
     Route: 042
  5. DEXAMETHASONE [Suspect]
     Active Substance: DEXAMETHASONE
     Indication: Plasma cell myeloma
     Dosage: 40 MILLIGRAM, QW
     Route: 065
     Dates: start: 202306

REACTIONS (6)
  - Death [Fatal]
  - Superficial vein thrombosis [Unknown]
  - Pyrexia [Unknown]
  - Dysarthria [Unknown]
  - General physical health deterioration [Unknown]
  - Tremor [Unknown]

NARRATIVE: CASE EVENT DATE: 20231201
